FAERS Safety Report 10272025 (Version 2)
Quarter: 2014Q3

REPORT INFORMATION
  Report Type: Spontaneous
  Country: JP (occurrence: JP)
  Receive Date: 20140702
  Receipt Date: 20140702
  Transmission Date: 20150326
  Serious: Yes (Hospitalization)
  Sender: FDA-Public Use
  Company Number: PHHY2014JP074919

PATIENT
  Age: 31 Year
  Sex: Female

DRUGS (6)
  1. PREDNISOLONE. [Suspect]
     Active Substance: PREDNISOLONE
     Indication: SYSTEMIC LUPUS ERYTHEMATOSUS
     Dosage: 7 MG, UNK
     Route: 048
     Dates: start: 1993
  2. AMBRISENTAN [Concomitant]
     Active Substance: AMBRISENTAN
     Indication: PULMONARY HYPERTENSION
     Route: 048
  3. SANDIMMUNE [Suspect]
     Active Substance: CYCLOSPORINE
     Indication: SYSTEMIC LUPUS ERYTHEMATOSUS
     Route: 048
     Dates: start: 1997
  4. PREDNISOLONE. [Suspect]
     Active Substance: PREDNISOLONE
     Indication: LUPUS CYSTITIS
     Dosage: 20 MG, UNK
     Route: 048
     Dates: start: 201209
  5. BERAPROST [Concomitant]
     Active Substance: BERAPROST
     Indication: PULMONARY HYPERTENSION
     Route: 048
  6. NEORAL [Suspect]
     Active Substance: CYCLOSPORINE
     Indication: SYSTEMIC LUPUS ERYTHEMATOSUS
     Dosage: 100 MG, UNK
     Route: 048

REACTIONS (21)
  - Bladder irritation [Recovering/Resolving]
  - Hypopnoea [Recovering/Resolving]
  - Renal disorder [Unknown]
  - Dizziness [Unknown]
  - Lupus cystitis [Recovering/Resolving]
  - Gastrointestinal disorder [Unknown]
  - Dysgeusia [Recovering/Resolving]
  - Pyrexia [Recovering/Resolving]
  - Malaise [Recovering/Resolving]
  - Skin mass [Recovering/Resolving]
  - Nocardiosis [Recovering/Resolving]
  - Insomnia [Recovering/Resolving]
  - Palpitations [Recovering/Resolving]
  - Weight decreased [Recovering/Resolving]
  - Lupus enteritis [Recovering/Resolving]
  - Decreased appetite [Recovering/Resolving]
  - Pulmonary mass [Recovering/Resolving]
  - Chest pain [Recovering/Resolving]
  - Sputum purulent [Recovering/Resolving]
  - Gastrointestinal oedema [Unknown]
  - Thrombocytopenia [Unknown]
